FAERS Safety Report 24968392 (Version 1)
Quarter: 2025Q1

REPORT INFORMATION
  Report Type: Report from Study
  Country: US (occurrence: US)
  Receive Date: 20250214
  Receipt Date: 20250214
  Transmission Date: 20250409
  Serious: Yes (Other)
  Sender: ABBVIE
  Company Number: US-ABBVIE-6127702

PATIENT
  Age: 36 Year
  Sex: Female
  Weight: 73.482 kg

DRUGS (7)
  1. UBRELVY [Suspect]
     Active Substance: UBROGEPANT
     Indication: Migraine
     Route: 048
     Dates: start: 20231015
  2. TYLENOL [Concomitant]
     Active Substance: ACETAMINOPHEN
     Indication: Product used for unknown indication
  3. ZYRTEC [Concomitant]
     Active Substance: CETIRIZINE HYDROCHLORIDE
     Indication: Product used for unknown indication
  4. ONDANSETRON [Concomitant]
     Active Substance: ONDANSETRON
     Indication: Product used for unknown indication
  5. COMPAZINE [Concomitant]
     Active Substance: PROCHLORPERAZINE MALEATE
     Indication: Migraine
  6. FOLIC ACID [Concomitant]
     Active Substance: FOLIC ACID
     Indication: Product used for unknown indication
  7. VITAMINS [Concomitant]
     Active Substance: VITAMINS
     Indication: Product used for unknown indication

REACTIONS (7)
  - Blood loss anaemia [Recovered/Resolved]
  - Hypertension [Recovered/Resolved]
  - Maternal exposure during pregnancy [Unknown]
  - Live birth [Unknown]
  - Incorrect dose administered [Unknown]
  - Uterine enlargement [Unknown]
  - Hydrometra [Unknown]

NARRATIVE: CASE EVENT DATE: 20241001
